FAERS Safety Report 8304726 (Version 5)
Quarter: 2015Q1

REPORT INFORMATION
  Report Type: Report from Study
  Country: US (occurrence: US)
  Receive Date: 20111221
  Receipt Date: 20150213
  Transmission Date: 20150721
  Serious: Yes (Other)
  Sender: FDA-Public Use
  Company Number: US-ROCHE-1021093

PATIENT

DRUGS (6)
  1. VORINOSTAT [Suspect]
     Active Substance: VORINOSTAT
     Indication: LEUKAEMIA
  2. RITUXIMAB [Suspect]
     Active Substance: RITUXIMAB
     Indication: MANTLE CELL LYMPHOMA
     Route: 042
  3. CLADRIBINE. [Suspect]
     Active Substance: CLADRIBINE
     Indication: LEUKAEMIA
  4. VORINOSTAT [Suspect]
     Active Substance: VORINOSTAT
     Indication: MANTLE CELL LYMPHOMA
     Dosage: DAY 1 TO 14
     Route: 048
  5. CLADRIBINE. [Suspect]
     Active Substance: CLADRIBINE
     Indication: MANTLE CELL LYMPHOMA
     Dosage: DAY 1 TO 5
     Route: 042
  6. RITUXIMAB [Suspect]
     Active Substance: RITUXIMAB
     Indication: LEUKAEMIA

REACTIONS (7)
  - Embolism [Unknown]
  - Febrile neutropenia [Unknown]
  - Decreased appetite [Unknown]
  - Fatigue [Unknown]
  - Neutropenia [Unknown]
  - Dehydration [Unknown]
  - Thrombocytopenia [Unknown]
